FAERS Safety Report 19670074 (Version 2)
Quarter: 2021Q3

REPORT INFORMATION
  Report Type: Report from Study
  Country: US (occurrence: US)
  Receive Date: 20210806
  Receipt Date: 20210825
  Transmission Date: 20211014
  Serious: Yes (Hospitalization, Other)
  Sender: FDA-Public Use
  Company Number: US-BRISTOL-MYERS SQUIBB COMPANY-BMS-2021-059907

PATIENT
  Age: 44 Year
  Sex: Female

DRUGS (12)
  1. CLONAZEPAM. [Concomitant]
     Active Substance: CLONAZEPAM
     Indication: ANXIETY
     Dosage: 0.5 MILLIGRAM, PRN
     Route: 048
     Dates: start: 2020
  2. NIVOLUMAB [Suspect]
     Active Substance: NIVOLUMAB
     Indication: MALIGNANT MELANOMA
     Dosage: 360 MILLIGRAM, Q3WK
     Route: 042
     Dates: start: 20210524
  3. MULTIVITAMIN [ASCORBIC ACID;BIOTIN;CALCIUM PANTOTHENATE;CYANOCOBALAMIN [Concomitant]
     Active Substance: VITAMINS
     Indication: SUPPLEMENTATION THERAPY
     Dosage: 1 TAB, QD
     Route: 048
     Dates: start: 1991
  4. VENLAFAXINE HCL [Concomitant]
     Active Substance: VENLAFAXINE HYDROCHLORIDE
     Indication: DEPRESSION
     Dosage: 37.5 MILLIGRAM, QD
     Route: 048
     Dates: start: 20210226
  5. MELATONIN [Concomitant]
     Active Substance: MELATONIN
     Indication: INSOMNIA
     Dosage: 5 MILLIGRAM PRN
     Route: 048
     Dates: start: 20210614
  6. BLACK COHOSH [CIMICIFUGA RACEMOSA] [Concomitant]
     Active Substance: BLACK COHOSH
     Indication: MENOPAUSAL SYMPTOMS
     Dosage: 20 MILLIGRAM, QD
     Route: 048
     Dates: start: 202004
  7. TRAZODONE [Concomitant]
     Active Substance: TRAZODONE HYDROCHLORIDE
     Indication: INSOMNIA
     Dosage: 150 MILLIGRAM, PRN
     Route: 048
     Dates: start: 20210614
  8. BEMPEGALDESLEUKIN [Suspect]
     Active Substance: BEMPEGALDESLEUKIN
     Indication: MALIGNANT MELANOMA
     Dosage: 0.53 MILLIGRAM, Q3WK
     Route: 042
     Dates: start: 20210524
  9. ALBUTEROL SULFATE. [Concomitant]
     Active Substance: ALBUTEROL SULFATE
     Indication: ASTHMA
     Dosage: 2 DOSAGE FORM = 2 PUFFS, PRN
     Route: 055
     Dates: start: 20200805
  10. ACIDOPHILUS [Concomitant]
     Active Substance: LACTOBACILLUS ACIDOPHILUS
     Indication: SUPPLEMENTATION THERAPY
     Dosage: 1 TAB, QD
     Route: 048
     Dates: start: 201704
  11. LIRAGLUTIDE [Concomitant]
     Active Substance: LIRAGLUTIDE
     Indication: DIABETES MELLITUS MANAGEMENT
     Dosage: 1 DOSAGE FORM = 3 MG/0.5 ML, QD
     Route: 058
     Dates: start: 202011
  12. BUPROPION HCL [Concomitant]
     Active Substance: BUPROPION HYDROCHLORIDE
     Indication: DEPRESSION
     Dosage: 450 MILLIGRAM, QD
     Route: 048
     Dates: start: 20191213

REACTIONS (1)
  - Cytokine release syndrome [Recovered/Resolved]

NARRATIVE: CASE EVENT DATE: 20210616
